APPROVED DRUG PRODUCT: POTASSIUM CHLORIDE 20MEQ IN DEXTROSE 5% AND LACTATED RINGER'S IN PLASTIC CONTAINER
Active Ingredient: CALCIUM CHLORIDE; DEXTROSE; POTASSIUM CHLORIDE; SODIUM CHLORIDE; SODIUM LACTATE
Strength: 20MG/100ML;5GM/100ML;179MG/100ML;600MG/100ML;310MG/100ML
Dosage Form/Route: INJECTABLE;INJECTION
Application: A211428 | Product #001
Applicant: FRESENIUS KABI USA LLC
Approved: Nov 9, 2021 | RLD: No | RS: No | Type: DISCN